FAERS Safety Report 16867164 (Version 2)
Quarter: 2019Q4

REPORT INFORMATION
  Report Type: Report from Study
  Country: IL (occurrence: IL)
  Receive Date: 20190930
  Receipt Date: 20191002
  Transmission Date: 20200122
  Serious: Yes (Other)
  Sender: FDA-Public Use
  Company Number: IL-TEVA-2019-IL-1115312

PATIENT
  Age: 64 Year
  Sex: Female
  Weight: 87 kg

DRUGS (3)
  1. SITAGLIPTIN PHOSPHATE [Suspect]
     Active Substance: SITAGLIPTIN PHOSPHATE
     Dosage: 2 DOSAGE FORMS DAILY;
     Route: 048
  2. GLUCOPHAGE [Suspect]
     Active Substance: METFORMIN HYDROCHLORIDE
     Dosage: 1 DOSAGE FORMS DAILY; HALF PILL IN THE MORNING AND HALF PILL IN THE EVENING
     Route: 065
  3. SITAGLIPTIN PHOSPHATE [Suspect]
     Active Substance: SITAGLIPTIN PHOSPHATE
     Dosage: 50 MILLIGRAM DAILY; AT NOON
     Route: 048

REACTIONS (17)
  - Eating disorder [Unknown]
  - Product prescribing issue [Unknown]
  - Drug ineffective [Unknown]
  - Irritability [Unknown]
  - Abdominal pain [Unknown]
  - Diarrhoea [Unknown]
  - Chest pain [Unknown]
  - Cataract [Recovered/Resolved]
  - Blood cholesterol increased [Unknown]
  - Malaise [Unknown]
  - Asthenia [Unknown]
  - Weight decreased [Unknown]
  - Blood glucose decreased [Unknown]
  - Depressed mood [Unknown]
  - Peripheral swelling [Unknown]
  - Dry skin [Unknown]
  - Product dose omission [Unknown]

NARRATIVE: CASE EVENT DATE: 20180507
